FAERS Safety Report 7324613-2 (Version None)
Quarter: 2011Q1

REPORT INFORMATION
  Report Type: 
  Country: None (occurrence: None)
  Receive Date: 20110209
  Receipt Date: 20101214
  Transmission Date: 20110831
  Serious: No
  Sender: FDA-Public Use
  Company Number: 2010000025

PATIENT
  Sex: Female

DRUGS (2)
  1. ULESFIA [Suspect]
     Indication: LICE INFESTATION
  2. ULESFIA [Suspect]

REACTIONS (2)
  - DRUG INEFFECTIVE [None]
  - CONDITION AGGRAVATED [None]
